FAERS Safety Report 4588210-4 (Version None)
Quarter: 2005Q1

REPORT INFORMATION
  Report Type: 
  Country: None (occurrence: None)
  Receive Date: 20050221
  Receipt Date: 20040813
  Transmission Date: 20050727
  Serious: Yes (Hospitalization)
  Sender: FDA-Public Use
  Company Number: GB-ROCHE-377682

PATIENT
  Age: 50 Year
  Sex: Male

DRUGS (31)
  1. DACLIZUMAB [Suspect]
     Route: 042
     Dates: start: 20040806, end: 20040806
  2. DACLIZUMAB [Suspect]
     Route: 042
     Dates: start: 20040813, end: 20040813
  3. MYCOPHENOLATE MOFETIL [Suspect]
     Route: 042
     Dates: start: 20040806, end: 20040810
  4. MYCOPHENOLATE MOFETIL [Suspect]
     Route: 048
     Dates: start: 20040811
  5. HYDROCORTISONE [Suspect]
     Route: 065
     Dates: start: 20040806, end: 20040810
  6. PREDNISOLONE [Suspect]
     Route: 065
     Dates: start: 20040810, end: 20040812
  7. PREDNISOLONE [Suspect]
     Dosage: TREATMENT OF REJECTION.
     Route: 065
     Dates: start: 20040813, end: 20040815
  8. PREDNISOLONE [Suspect]
     Dosage: TAPERED ACCORDING TO LOCAL PROTOCOL.
     Route: 065
     Dates: start: 20040816, end: 20041025
  9. TACROLIMUS [Suspect]
     Dosage: ADJUSTED TO REACH PREDEFINED TARGET LEVELS.
     Route: 048
     Dates: start: 20040811
  10. CHLORHEXIDINE [Concomitant]
     Indication: PROPHYLAXIS
     Dates: start: 20040807, end: 20040809
  11. CIPROFLOXACIN [Concomitant]
     Dosage: ANTIBIOTIC.
     Dates: start: 20040806, end: 20040809
  12. COTRIM [Concomitant]
     Dosage: ANTIBIOTIC.
     Dates: start: 20040808
  13. FLUCONAZOLE [Concomitant]
     Indication: FUNGAL INFECTION
     Dosage: ANTI-FUNGAL.
     Dates: start: 20040806, end: 20040809
  14. METRONIDAZOLE [Concomitant]
     Dosage: ANTIBIOTIC.
     Dates: start: 20040806
  15. MUPIROCIN [Concomitant]
     Indication: PROPHYLAXIS
     Dates: start: 20040807, end: 20040809
  16. ACETAMINOPHEN [Concomitant]
     Dates: start: 20040807, end: 20041018
  17. ESOMEPRAZOLE [Concomitant]
     Dosage: ANTI-ACID.
     Dates: start: 20040807, end: 20040809
  18. TRAMADOL HCL [Concomitant]
     Dates: start: 20040807
  19. ACTRAPID [Concomitant]
     Indication: HYPERGLYCAEMIA
     Dates: start: 20040806, end: 20040816
  20. AMLODIPINE [Concomitant]
     Indication: HYPERTENSION
     Dates: start: 20040807
  21. DOXAZOSIN [Concomitant]
     Indication: HYPERTENSION
     Dates: start: 20040808, end: 20040809
  22. NYSTATIN [Concomitant]
     Indication: PROPHYLAXIS
     Dates: start: 20040409, end: 20040826
  23. MEROPENEM [Concomitant]
     Dates: start: 20040810, end: 20040816
  24. LANSOPRAZOLE [Concomitant]
     Dates: start: 20040810, end: 20040913
  25. CO CODAMOL [Concomitant]
     Dates: start: 20040811, end: 20040817
  26. ASPIRIN [Concomitant]
     Indication: PROPHYLAXIS
     Dates: start: 20040814
  27. ORAMORPH SR [Concomitant]
     Dates: start: 20040810, end: 20040817
  28. SODIUM BICARBONATE IN PLASTIC CONTAINER [Concomitant]
     Indication: RENAL DISORDER
     Dates: start: 20040817, end: 20041018
  29. CALCIUM RESONIUM [Concomitant]
     Dates: start: 20040817, end: 20040817
  30. NOVOMIX 30 [Concomitant]
     Indication: HYPERGLYCAEMIA
     Dates: start: 20040817, end: 20041018
  31. DEXTROSE 50% [Concomitant]
     Dates: start: 20040817, end: 20040817

REACTIONS (3)
  - KLEBSIELLA INFECTION [None]
  - NEPHROLITHIASIS [None]
  - URINARY TRACT INFECTION [None]
